FAERS Safety Report 5645557-8 (Version None)
Quarter: 2008Q1

REPORT INFORMATION
  Report Type: 
  Country: None (occurrence: None)
  Receive Date: 20080229
  Receipt Date: 20080219
  Transmission Date: 20080703
  Serious: Yes (Hospitalization)
  Sender: FDA-Public Use
  Company Number: US-WYE-H02670108

PATIENT
  Sex: Female
  Weight: 116.22 kg

DRUGS (13)
  1. PREMPRO [Suspect]
     Indication: HORMONE REPLACEMENT THERAPY
     Dosage: NOT PROVIDED
     Dates: start: 19970101, end: 20070601
  2. PREMPRO [Suspect]
     Dosage: LOW DOSE
     Dates: start: 20070601, end: 20070701
  3. CELEBREX [Suspect]
     Indication: PAIN
     Dosage: NOT PROVIDED
     Dates: end: 20070701
  4. SYNTHROID [Concomitant]
     Indication: HYPOTHYROIDISM
     Dosage: NOT PROVIDED
  5. PRAVACHOL [Concomitant]
     Indication: BLOOD CHOLESTEROL INCREASED
     Dosage: NOT PROVIDED
     Dates: start: 20000101
  6. DILTIAZEM [Concomitant]
     Indication: HYPERTENSION
     Dosage: NOT PROVIDED
     Dates: start: 19970101, end: 20070701
  7. COZAAR [Concomitant]
     Indication: HYPERTENSION
     Dosage: NOT PROVIDED
     Dates: start: 19970101
  8. ZETIA [Concomitant]
     Indication: BLOOD CHOLESTEROL INCREASED
     Dosage: NOT PROVIDED
  9. SEROQUEL [Concomitant]
     Indication: SLEEP DISORDER
     Dosage: NOT PROVIDED
  10. WELLBUTRIN [Concomitant]
     Indication: MULTIPLE SCLEROSIS
     Dosage: NOT PROVIDED
     Dates: end: 20070701
  11. REBIF [Suspect]
     Indication: MULTIPLE SCLEROSIS
     Dosage: 44 MCGS, THREE TIMES PER WEEK
     Route: 058
     Dates: start: 20061122
  12. IBUPROFEN [Concomitant]
     Indication: BONE PAIN
     Dosage: NOT PROVIDED
  13. IBUPROFEN [Concomitant]
     Indication: MYALGIA

REACTIONS (4)
  - CORONARY ARTERY OCCLUSION [None]
  - EAR PAIN [None]
  - MYOCARDIAL INFARCTION [None]
  - SINUSITIS [None]
